FAERS Safety Report 7687994-6 (Version None)
Quarter: 2011Q3

REPORT INFORMATION
  Report Type: 
  Country: None (occurrence: None)
  Receive Date: 20110816
  Receipt Date: 20110816
  Transmission Date: 20111222
  Serious: Yes (Hospitalization)
  Sender: FDA-Public Use
  Company Number: None

PATIENT
  Age: 24 Year
  Sex: Male
  Weight: 91.3 kg

DRUGS (1)
  1. SUMATRIPTAN SUCCINATE [Suspect]
     Indication: HEADACHE
     Dosage: 50 MG PRN PO
     Route: 048
     Dates: start: 20110328, end: 20110505

REACTIONS (3)
  - ANAPHYLACTIC REACTION [None]
  - THROAT TIGHTNESS [None]
  - MUSCLE TIGHTNESS [None]
